FAERS Safety Report 21960631 (Version 1)
Quarter: 2023Q1

REPORT INFORMATION
  Report Type: Spontaneous
  Country: US (occurrence: US)
  Receive Date: 20230207
  Receipt Date: 20230207
  Transmission Date: 20230417
  Serious: No
  Sender: FDA-Public Use
  Company Number: US-GLAXOSMITHKLINE-USCH2023005310

PATIENT
  Sex: Male

DRUGS (1)
  1. ADVIL LIQUI-GELS [Suspect]
     Active Substance: IBUPROFEN
     Indication: Inflammation
     Dosage: UNK
     Dates: start: 20230120

REACTIONS (3)
  - Abdominal discomfort [Unknown]
  - Panic attack [Unknown]
  - Product use in unapproved indication [Unknown]
